FAERS Safety Report 6173082-7 (Version None)
Quarter: 2009Q2

REPORT INFORMATION
  Report Type: 
  Country: None (occurrence: None)
  Receive Date: 20090424
  Receipt Date: 20090127
  Transmission Date: 20091009
  Serious: No
  Sender: FDA-Public Use
  Company Number: ALL1-2009-00201

PATIENT
  Age: 24 Year
  Sex: Male
  Weight: 81.6 kg

DRUGS (3)
  1. VYVANSE [Suspect]
     Indication: ATTENTION DEFICIT/HYPERACTIVITY DISORDER
     Dosage: 50 MG, 1X/DAY QD, ORAL; 70 MG, 1X/DAY; QD, ORAL; 50 MG, 2X/DAY; BID,  ORAL
     Route: 048
     Dates: start: 20080901, end: 20081001
  2. VYVANSE [Suspect]
     Indication: ATTENTION DEFICIT/HYPERACTIVITY DISORDER
     Dosage: 50 MG, 1X/DAY QD, ORAL; 70 MG, 1X/DAY; QD, ORAL; 50 MG, 2X/DAY; BID,  ORAL
     Route: 048
     Dates: start: 20081001, end: 20081001
  3. VYVANSE [Suspect]
     Indication: ATTENTION DEFICIT/HYPERACTIVITY DISORDER
     Dosage: 50 MG, 1X/DAY QD, ORAL; 70 MG, 1X/DAY; QD, ORAL; 50 MG, 2X/DAY; BID,  ORAL
     Route: 048
     Dates: start: 20081001, end: 20090101

REACTIONS (5)
  - DRUG EFFECT DECREASED [None]
  - HYPOAESTHESIA [None]
  - INAPPROPRIATE SCHEDULE OF DRUG ADMINISTRATION [None]
  - OVERDOSE [None]
  - PARAESTHESIA [None]
